FAERS Safety Report 7687780-7 (Version None)
Quarter: 2011Q3

REPORT INFORMATION
  Report Type: 
  Country: None (occurrence: None)
  Receive Date: 20110817
  Receipt Date: 20110803
  Transmission Date: 20111222
  Serious: No
  Sender: FDA-Public Use
  Company Number: US-B.I. PHARMACEUTICALS,INC./RIDGEFIELD-2011-BP-19155BP

PATIENT
  Age: 86 Year
  Sex: Male

DRUGS (9)
  1. FOSAMAX [Concomitant]
     Indication: OSTEOPOROSIS
     Dates: start: 20080101
  2. PREDNISONE [Concomitant]
     Indication: MUSCULOSKELETAL STIFFNESS
     Dosage: 1 MG
     Route: 048
     Dates: start: 20080101
  3. VITAMIN D [Concomitant]
     Indication: VITAMIN D DEFICIENCY
     Dates: start: 20080101
  4. CALCIUM CARBONATE [Concomitant]
     Indication: ROUTINE HEALTH MAINTENANCE
     Dates: start: 20080101
  5. PRADAXA [Suspect]
     Indication: ATRIAL FIBRILLATION
     Dosage: 300 MG
     Route: 048
     Dates: start: 20110701
  6. PACERONE [Concomitant]
     Indication: ATRIAL FIBRILLATION
     Dates: start: 20080101
  7. ASPIRIN [Concomitant]
     Indication: ATRIAL FIBRILLATION
     Dates: start: 20080101
  8. LISINOPRIL [Concomitant]
     Indication: BLOOD CHOLESTEROL INCREASED
     Dosage: 5 MG
     Route: 048
     Dates: start: 20070101
  9. CARDIAZEM [Concomitant]
     Indication: ATRIAL FIBRILLATION
     Dosage: 180 MG
     Route: 048
     Dates: start: 20080101

REACTIONS (2)
  - ARTHRALGIA [None]
  - CONSTIPATION [None]
